FAERS Safety Report 9439192 (Version 2)
Quarter: 2013Q3

REPORT INFORMATION
  Report Type: Spontaneous
  Country: AU (occurrence: AU)
  Receive Date: 20130803
  Receipt Date: 20130809
  Transmission Date: 20140515
  Serious: Yes (Death, Hospitalization)
  Sender: FDA-Public Use
  Company Number: AU-B.I. PHARMACEUTICALS,INC./RIDGEFIELD-2013-AU-00934AU

PATIENT
  Age: 84 Year
  Sex: Female
  Weight: 46.7 kg

DRUGS (4)
  1. PRADAXA [Suspect]
     Indication: CEREBROVASCULAR ACCIDENT PROPHYLAXIS
     Dosage: 220 MG
     Dates: start: 20110805
  2. PRADAXA [Suspect]
     Indication: ATRIAL FIBRILLATION
  3. PROTON PUMP INHIBITOR [Concomitant]
  4. SELECTIVE SEROTONIN REUPTAKE INHIBITOR [Concomitant]

REACTIONS (3)
  - Infective exacerbation of chronic obstructive airways disease [Fatal]
  - Renal impairment [Unknown]
  - Hypovolaemia [Unknown]
